FAERS Safety Report 18314302 (Version 2)
Quarter: 2020Q3

REPORT INFORMATION
  Report Type: Spontaneous
  Country: TH (occurrence: TH)
  Receive Date: 20200925
  Receipt Date: 20200930
  Transmission Date: 20201103
  Serious: Yes (Death, Other)
  Sender: FDA-Public Use
  Company Number: TH-TAKEDA-2020TUS040177

PATIENT
  Age: 34 Year
  Sex: Female

DRUGS (3)
  1. ALUNBRIG [Suspect]
     Active Substance: BRIGATINIB
     Indication: METASTASES TO LIVER
  2. ALUNBRIG [Suspect]
     Active Substance: BRIGATINIB
     Indication: LUNG ADENOCARCINOMA STAGE IV
     Dosage: UNK
     Route: 065
     Dates: start: 201905
  3. ALUNBRIG [Suspect]
     Active Substance: BRIGATINIB
     Indication: METASTASES TO LUNG

REACTIONS (1)
  - Lung adenocarcinoma stage IV [Fatal]
